FAERS Safety Report 23178286 (Version 3)
Quarter: 2024Q1

REPORT INFORMATION
  Report Type: Spontaneous
  Country: PT (occurrence: PT)
  Receive Date: 20231113
  Receipt Date: 20240213
  Transmission Date: 20240409
  Serious: Yes (Other)
  Sender: FDA-Public Use
  Company Number: PT-ROCHE-2801935

PATIENT
  Age: 42 Year
  Sex: Female
  Weight: 70 kg

DRUGS (31)
  1. CARBOPLATIN [Suspect]
     Active Substance: CARBOPLATIN
     Indication: Breast cancer
     Dosage: 240 MG
     Route: 042
     Dates: start: 20200721
  2. CARBOPLATIN [Suspect]
     Active Substance: CARBOPLATIN
     Indication: HER2 positive breast cancer
     Dosage: 240 MG
     Route: 042
     Dates: start: 202103
  3. CARBOPLATIN [Suspect]
     Active Substance: CARBOPLATIN
     Dosage: 240 MG
     Route: 042
     Dates: start: 20200908
  4. DOCETAXEL [Suspect]
     Active Substance: DOCETAXEL\DOCETAXEL ANHYDROUS
     Indication: Breast cancer
     Dosage: 100 MG/M2, Q3W
     Route: 042
     Dates: start: 20170504, end: 20170922
  5. FULVESTRANT [Suspect]
     Active Substance: FULVESTRANT
     Indication: Breast cancer
     Dosage: 500 MG, Q4W
     Route: 058
     Dates: start: 20190111
  6. FASLODEX [Suspect]
     Active Substance: FULVESTRANT
     Indication: HER2 positive breast cancer
     Dosage: 500 MG
     Route: 058
     Dates: start: 20190805
  7. FASLODEX [Suspect]
     Active Substance: FULVESTRANT
     Dosage: ON 05/AUG/2019, SHE RECEIVED MOST RECENT DOSE OF SC FULVESTRANT 500 MG.
     Route: 058
     Dates: start: 20190111
  8. FEMARA [Suspect]
     Active Substance: LETROZOLE
     Indication: Product used for unknown indication
     Dosage: UNK, QD
     Route: 048
     Dates: start: 20171124, end: 20180920
  9. GEMCITABINE [Suspect]
     Active Substance: GEMCITABINE
     Indication: Breast cancer
     Dosage: 1000 MG/M2
     Route: 065
     Dates: start: 20200908
  10. GEMCITABINE [Suspect]
     Active Substance: GEMCITABINE
     Indication: HER2 positive breast cancer
  11. GEMZAR [Suspect]
     Active Substance: GEMCITABINE HYDROCHLORIDE
     Dosage: 1000 MG/M2
     Route: 042
     Dates: start: 20200908
  12. GEMZAR [Suspect]
     Active Substance: GEMCITABINE HYDROCHLORIDE
     Indication: HER2 positive breast cancer
     Dosage: IN /MAR/2021, SHE RECEIVED MOST RECENT DOSE OF IV GEMCITABINE 1650 MG.
     Route: 042
     Dates: start: 20200721
  13. HERCEPTIN [Suspect]
     Active Substance: TRASTUZUMAB
     Dosage: FREQUENCY: Q3W - EVERY 3 WEEKS MOST RECENT DOSE PRIOR TO THE EVENT: 13/JAN/2020
     Route: 042
     Dates: start: 20170504, end: 20180920
  14. HERCEPTIN [Suspect]
     Active Substance: TRASTUZUMAB
     Indication: HER2 positive breast cancer
     Dosage: UNK, TIW
     Route: 065
     Dates: start: 20200113
  15. KADCYLA [Suspect]
     Active Substance: ADO-TRASTUZUMAB EMTANSINE
     Indication: HER2 positive breast cancer
     Dosage: 230 MG, TIW
     Route: 042
     Dates: start: 20181130, end: 20190805
  16. LETROZOLE [Suspect]
     Active Substance: LETROZOLE
     Indication: Breast cancer
     Dosage: UNK UNK, QD
     Route: 048
     Dates: start: 20171124, end: 20180920
  17. NAVELBINE [Suspect]
     Active Substance: VINORELBINE TARTRATE
     Indication: HER2 positive breast cancer
     Dosage: OTHER. ON 24/MAR/2020, SHE RECEIVED MOST RECENT DOSE OF ORAL VINORELBINE 50 MG
     Route: 048
     Dates: start: 20200113
  18. PARAPLATIN [Suspect]
     Active Substance: CARBOPLATIN
     Dosage: 240 MG
     Route: 040
     Dates: start: 202103
  19. PARAPLATIN [Suspect]
     Active Substance: CARBOPLATIN
     Indication: HER2 positive breast cancer
     Dosage: 240 MG
     Route: 042
     Dates: start: 20200908
  20. PARAPLATIN [Suspect]
     Active Substance: CARBOPLATIN
     Dosage: IN /MAR/2021, SHE RECEIVED MOST RECENT DOSE OF IV CARBOPLATIN 240 MG.
     Route: 042
     Dates: start: 20200721
  21. PERJETA [Suspect]
     Active Substance: PERTUZUMAB
     Indication: HER2 positive breast cancer
     Dosage: 420 MG, TIW
     Route: 042
     Dates: start: 20170504, end: 20180920
  22. PERTUZUMAB [Suspect]
     Active Substance: PERTUZUMAB
     Indication: Breast cancer
     Dosage: 420 MG, TIW
     Route: 042
     Dates: start: 20170504, end: 20180920
  23. PERTUZUMAB [Suspect]
     Active Substance: PERTUZUMAB
     Indication: HER2 positive breast cancer
  24. TAXOTERE [Suspect]
     Active Substance: DOCETAXEL
     Indication: HER2 positive breast cancer
     Dosage: 100 MG/M2, Q3WEVERY 3 WEEKS MOST RECENT DOSE PRIOR TO THE EVENT: 26/MAR/2020
     Route: 042
     Dates: start: 20170504, end: 20170922
  25. TRASTUZUMAB [Suspect]
     Active Substance: TRASTUZUMAB
     Indication: Breast cancer
     Dosage: 600 MG, Q3W
     Route: 041
     Dates: start: 20170504, end: 20180920
  26. ADO-TRASTUZUMAB EMTANSINE [Suspect]
     Active Substance: ADO-TRASTUZUMAB EMTANSINE
     Indication: Breast cancer
     Dosage: 230 MG, Q3W
     Route: 042
     Dates: start: 20181130, end: 20200724
  27. ADO-TRASTUZUMAB EMTANSINE [Suspect]
     Active Substance: ADO-TRASTUZUMAB EMTANSINE
     Indication: HER2 positive breast cancer
  28. TYKERB [Suspect]
     Active Substance: LAPATINIB DITOSYLATE
     Indication: HER2 positive breast cancer
     Dosage: O.D. - ONCE DAILY. ON 13/JAN/2020, SHE RECEIVED MOST RECENT DOSE OF ORAL LAPATINIB 1000 MG
     Route: 048
     Dates: start: 20190805
  29. XELODA [Suspect]
     Active Substance: CAPECITABINE
     Indication: HER2 positive breast cancer
     Dosage: B.I.D. - TWICE DAILY. ON 13/JAN/2020, SHE RECEIVED MOST RECENT DOSE OF ORAL CAPECITABINE 1650 MG.
     Route: 048
     Dates: start: 20190805
  30. ESCITALOPRAM [Concomitant]
     Active Substance: ESCITALOPRAM OXALATE
     Indication: Product used for unknown indication
     Dosage: UNK
     Route: 065
     Dates: start: 20180505
  31. FILGRASTIM [Concomitant]
     Active Substance: FILGRASTIM
     Indication: Neutropenia
     Dosage: ONGOING = NOT CHECKED
     Route: 065
     Dates: start: 20210202, end: 20210204

REACTIONS (6)
  - Hepatotoxicity [Unknown]
  - Neutropenia [Recovered/Resolved]
  - Neutropenia [Recovered/Resolved]
  - Neutropenia [Unknown]
  - Pleural effusion [Recovered/Resolved]
  - Anaemia [Unknown]

NARRATIVE: CASE EVENT DATE: 20200724
